FAERS Safety Report 15997923 (Version 8)
Quarter: 2022Q2

REPORT INFORMATION
  Report Type: Report from Study
  Country: US (occurrence: US)
  Receive Date: 20190222
  Receipt Date: 20220510
  Transmission Date: 20220720
  Serious: Yes (Hospitalization, Other)
  Sender: FDA-Public Use
  Company Number: US-SHIRE-US201905833

PATIENT
  Sex: Female
  Weight: 93 kg

DRUGS (10)
  1. LANADELUMAB [Suspect]
     Active Substance: LANADELUMAB
     Indication: Immune system disorder
     Dosage: 300 MILLIGRAM, Q2WEEKS
     Route: 058
     Dates: start: 20201219
  2. CINRYZE [Suspect]
     Active Substance: HUMAN C1-ESTERASE INHIBITOR
     Indication: Product used for unknown indication
     Dosage: 1000 INTERNATIONAL UNIT, 2/WEEK
     Route: 050
     Dates: start: 20190201
  3. CINRYZE [Suspect]
     Active Substance: HUMAN C1-ESTERASE INHIBITOR
     Indication: Product used for unknown indication
     Dosage: 1000 INTERNATIONAL UNIT, 2/WEEK
     Route: 050
     Dates: start: 20190201
  4. CINRYZE [Suspect]
     Active Substance: HUMAN C1-ESTERASE INHIBITOR
     Indication: Product used for unknown indication
     Dosage: 1000 INTERNATIONAL UNIT, 2/WEEK
     Route: 050
     Dates: start: 20190201
  5. ICATIBANT [Concomitant]
     Active Substance: ICATIBANT ACETATE
  6. BOTOX [Concomitant]
     Active Substance: ONABOTULINUMTOXINA
  7. OMEPRAZOLE [Concomitant]
     Active Substance: OMEPRAZOLE
  8. HAEGARDA [Concomitant]
     Active Substance: HUMAN C1-ESTERASE INHIBITOR
  9. FIRAZYR [Concomitant]
     Active Substance: ICATIBANT ACETATE
  10. NORETHINDRONE [Concomitant]
     Active Substance: NORETHINDRONE
     Dosage: UNK
     Route: 065

REACTIONS (10)
  - Arthropathy [Unknown]
  - Influenza [Not Recovered/Not Resolved]
  - Pain [Unknown]
  - Fatigue [Unknown]
  - Exposure during pregnancy [Not Recovered/Not Resolved]
  - Inappropriate schedule of product administration [Unknown]
  - Myalgia [Unknown]
  - Hereditary angioedema [Unknown]
  - Illness [Unknown]
  - Gastroenteritis viral [Unknown]
